FAERS Safety Report 21502877 (Version 1)
Quarter: 2022Q4

REPORT INFORMATION
  Report Type: Other
  Country: JP (occurrence: JP)
  Receive Date: 20221025
  Receipt Date: 20221025
  Transmission Date: 20230113
  Serious: Yes (Death, Other)
  Sender: FDA-Public Use
  Company Number: JP-CHUGAI-2022041387

PATIENT
  Age: 66 Year
  Sex: Male
  Weight: 69 kg

DRUGS (4)
  1. TOCILIZUMAB [Suspect]
     Active Substance: TOCILIZUMAB
     Indication: Cytokine release syndrome
     Dosage: UNK
     Route: 065
  2. KYMRIAH [Suspect]
     Active Substance: TISAGENLECLEUCEL
     Indication: Diffuse large B-cell lymphoma
     Dosage: FULL DOSE
     Route: 041
     Dates: start: 20210903, end: 20210903
  3. CYCLOPHOSPHAMIDE [Concomitant]
     Active Substance: CYCLOPHOSPHAMIDE
     Dosage: UNK
     Route: 065
     Dates: start: 20210830
  4. FLUDARABINE PHOSPHATE [Concomitant]
     Active Substance: FLUDARABINE PHOSPHATE
     Dosage: UNK
     Route: 065
     Dates: start: 20210830

REACTIONS (8)
  - Infection [Fatal]
  - Respiratory failure [Fatal]
  - Pneumonia pseudomonal [Fatal]
  - Sepsis [Fatal]
  - Haemophagocytic lymphohistiocytosis [Unknown]
  - Myelosuppression [Unknown]
  - Haemoglobin decreased [Unknown]
  - Hypogammaglobulinaemia [Recovered/Resolved]

NARRATIVE: CASE EVENT DATE: 20210913
